FAERS Safety Report 6887922-7 (Version None)
Quarter: 2010Q3

REPORT INFORMATION
  Report Type: 
  Country: None (occurrence: None)
  Receive Date: 20100730
  Receipt Date: 20100720
  Transmission Date: 20110219
  Serious: Yes (Hospitalization)
  Sender: FDA-Public Use
  Company Number: A0785667A

PATIENT
  Age: 52 Year
  Sex: Female
  Weight: 85 kg

DRUGS (8)
  1. AVANDIA [Suspect]
     Dates: start: 20030708, end: 20080111
  2. METFORMIN HCL [Concomitant]
  3. GLARGINE [Concomitant]
  4. LANTUS [Concomitant]
  5. LEVEMIR [Concomitant]
  6. GLYBURIDE [Concomitant]
  7. LOVASTATIN [Concomitant]
  8. LIPITOR [Concomitant]

REACTIONS (8)
  - AMNESIA [None]
  - APHASIA [None]
  - CEREBROVASCULAR ACCIDENT [None]
  - CONVULSION [None]
  - HEMIPARESIS [None]
  - SPEECH DISORDER [None]
  - TRANSIENT ISCHAEMIC ATTACK [None]
  - VISUAL IMPAIRMENT [None]
